FAERS Safety Report 22168185 (Version 1)
Quarter: 2023Q2

REPORT INFORMATION
  Report Type: Spontaneous
  Country: US (occurrence: US)
  Receive Date: 20230403
  Receipt Date: 20230403
  Transmission Date: 20230722
  Serious: Yes (Other)
  Sender: FDA-Public Use
  Company Number: US-ELITE LABORATORIES INC.-2023ELT00040

PATIENT
  Age: 59 Year
  Sex: Male

DRUGS (7)
  1. DEXTROAMPHET SACCHARAT, AMPHET ASPARTATE, DEXTROAMPHET SULFATE AND AMP [Suspect]
     Active Substance: AMPHETAMINE ASPARTATE\AMPHETAMINE ASPARTATE MONOHYDRATE\AMPHETAMINE SULFATE\DEXTROAMPHETAMINE SACCHA
     Indication: Attention deficit hyperactivity disorder
     Dosage: UNK
  2. DEXTROAMPHET SACCHARAT, AMPHET ASPARTATE, DEXTROAMPHET SULFATE AND AMP [Suspect]
     Active Substance: AMPHETAMINE ASPARTATE\AMPHETAMINE ASPARTATE MONOHYDRATE\AMPHETAMINE SULFATE\DEXTROAMPHETAMINE SACCHA
     Dosage: TAKES OCCASSIONALY WHEN HE HAS ISSUES GETTING AROUND
  3. MESALAMINE [Concomitant]
     Active Substance: MESALAMINE
  4. VITAMIN C [Concomitant]
     Active Substance: ASCORBIC ACID
  5. VITAMIN B [Concomitant]
     Active Substance: VITAMIN B
  6. UNSPECIFIED MINERAL DRUG [Concomitant]
  7. UNSPECIFIED HORMONE DRUG? [Concomitant]

REACTIONS (6)
  - Surgery [Unknown]
  - Insomnia [Unknown]
  - Mobility decreased [Unknown]
  - Product storage error [Unknown]
  - Expired product administered [Unknown]
  - Balance disorder [Unknown]
